FAERS Safety Report 14293486 (Version 9)
Quarter: 2020Q2

REPORT INFORMATION
  Report Type: Spontaneous
  Country: CA (occurrence: CA)
  Receive Date: 20171215
  Receipt Date: 20200513
  Transmission Date: 20200713
  Serious: Yes (Hospitalization, Other)
  Sender: FDA-Public Use
  Company Number: CA-009507513-1412CAN011428

PATIENT
  Age: 66 Year
  Sex: Female

DRUGS (4)
  1. EZETROL [Suspect]
     Active Substance: EZETIMIBE
     Indication: DYSLIPIDAEMIA
  2. EZETROL [Suspect]
     Active Substance: EZETIMIBE
     Indication: HYPERCHOLESTEROLAEMIA
  3. WARFARIN [Concomitant]
     Active Substance: WARFARIN
     Dosage: UNK
     Route: 065
  4. EZETROL [Suspect]
     Active Substance: EZETIMIBE
     Indication: TYPE IIA HYPERLIPIDAEMIA
     Dosage: DOSE: 10 MILLIGRAM, DAILY (QD)
     Route: 048
     Dates: start: 200806

REACTIONS (16)
  - Appendicitis [Recovering/Resolving]
  - Dyspnoea [Recovering/Resolving]
  - Haemoglobin decreased [Recovering/Resolving]
  - Fall [Recovering/Resolving]
  - Pulmonary embolism [Recovering/Resolving]
  - Malaise [Unknown]
  - General physical health deterioration [Not Recovered/Not Resolved]
  - Haemorrhage [Recovering/Resolving]
  - Fatigue [Recovering/Resolving]
  - Fatigue [Recovering/Resolving]
  - Pneumonia [Unknown]
  - Bronchiectasis [Recovering/Resolving]
  - Gastrointestinal injury [Recovering/Resolving]
  - Pneumonia [Recovering/Resolving]
  - Haematochezia [Recovering/Resolving]
  - Bronchiectasis [Not Recovered/Not Resolved]

NARRATIVE: CASE EVENT DATE: 2017
